FAERS Safety Report 8481162-6 (Version None)
Quarter: 2012Q3

REPORT INFORMATION
  Report Type: 
  Country: None (occurrence: None)
  Receive Date: 20120702
  Receipt Date: 20120628
  Transmission Date: 20120928
  Serious: Yes (Death, Other)
  Sender: FDA-Public Use
  Company Number: PHHY2012NL055887

PATIENT
  Sex: Male

DRUGS (4)
  1. ZOMETA [Suspect]
     Dosage: 4 MG/100 ML
     Dates: start: 20111130
  2. ZOMETA [Suspect]
     Dosage: 4 MG/100 ML
     Dates: start: 20120105, end: 20120101
  3. CHEMOTHERAPEUTICS NOS [Suspect]
  4. ZOMETA [Suspect]
     Indication: PROSTATE CANCER METASTATIC
     Dosage: 4 MG/100 ML
     Dates: start: 20110301

REACTIONS (2)
  - DEATH [None]
  - INFECTION [None]
